FAERS Safety Report 8246902-X (Version None)
Quarter: 2012Q1

REPORT INFORMATION
  Report Type: 
  Country: None (occurrence: None)
  Receive Date: 20120330
  Receipt Date: 20120327
  Transmission Date: 20120608
  Serious: Yes (Other)
  Sender: FDA-Public Use
  Company Number: US-FRI-1000029009

PATIENT
  Age: 66 Year
  Sex: Male

DRUGS (2)
  1. FEVERFEW [Suspect]
     Indication: HEADACHE
  2. PROPRANOLOL HCL [Suspect]

REACTIONS (5)
  - TOXICITY TO VARIOUS AGENTS [None]
  - DRUG INTERACTION [None]
  - BRADYCARDIA [None]
  - HYPOTENSION [None]
  - ASTHENIA [None]
